FAERS Safety Report 5782251-7 (Version None)
Quarter: 2008Q2

REPORT INFORMATION
  Report Type: 
  Country: None (occurrence: None)
  Receive Date: 20080623
  Receipt Date: 20080201
  Transmission Date: 20081010
  Serious: No
  Sender: FDA-Public Use
  Company Number: US-BAYER-200812280NA

PATIENT
  Sex: Male

DRUGS (1)
  1. KOGENATE FS [Suspect]
     Indication: HAEMOPHILIA
     Route: 042
     Dates: start: 20080122

REACTIONS (1)
  - HAEMORRHAGE [None]
